FAERS Safety Report 10423559 (Version 1)
Quarter: 2014Q3

REPORT INFORMATION
  Report Type: Spontaneous
  Country: US (occurrence: None)
  Receive Date: 20140722
  Receipt Date: 20140722
  Transmission Date: 20150326
  Serious: No
  Sender: FDA-Public Use
  Company Number: AEGR000380

PATIENT
  Age: 49 Year
  Sex: Female
  Weight: 90.2 kg

DRUGS (15)
  1. JUXTAPID [Suspect]
     Active Substance: LOMITAPIDE MESYLATE
     Indication: TYPE IIA HYPERLIPIDAEMIA
     Route: 048
     Dates: start: 201310
  2. LANTUS [Concomitant]
     Active Substance: INSULIN GLARGINE
  3. SEROQUEL [Concomitant]
     Active Substance: QUETIAPINE FUMARATE
  4. LYRICA [Concomitant]
     Active Substance: PREGABALIN
  5. NOVOLOG [Concomitant]
     Active Substance: INSULIN ASPART
  6. EFFIENT (PRASUGREL HYDROCHLORIDE) [Concomitant]
  7. KLONOPIN (CLONAZEPAM) [Concomitant]
  8. NORTRIPTYLINE HCL (NORTRIPTYLINE HYDROCHLORIDE) [Concomitant]
  9. SOMA [Concomitant]
     Active Substance: CARISOPRODOL
  10. TRAZODONE HCL (TRAZODONE HYDROCHLORIDE) [Concomitant]
  11. CRESTOR [Concomitant]
     Active Substance: ROSUVASTATIN CALCIUM
  12. NEXIUM [Concomitant]
     Active Substance: ESOMEPRAZOLE MAGNESIUM
  13. NITROSTAT (GLYCERYL TRINITRATE) [Concomitant]
  14. NORCO (HYDROCODONE BITARTRATE, PARACETAMOL) [Concomitant]
  15. TRILIPIX [Concomitant]
     Active Substance: FENOFIBRIC ACID

REACTIONS (4)
  - Spinal fusion surgery [None]
  - Decreased appetite [None]
  - Blood triglycerides decreased [None]
  - Weight decreased [None]

NARRATIVE: CASE EVENT DATE: 201310
